FAERS Safety Report 20200537 (Version 1)
Quarter: 2021Q4

REPORT INFORMATION
  Report Type: Spontaneous
  Country: US (occurrence: US)
  Receive Date: 20211217
  Receipt Date: 20211217
  Transmission Date: 20220303
  Serious: No
  Sender: FDA-Public Use
  Company Number: US-PERRIGO-21US004230

PATIENT
  Age: 66 Year
  Sex: Female
  Weight: 53.515 kg

DRUGS (2)
  1. BACITRACIN [Suspect]
     Active Substance: BACITRACIN
     Indication: Meibomian gland dysfunction
     Dosage: SMALL AMOUNT, SINGLE
     Route: 047
     Dates: start: 20210323, end: 20210323
  2. BACITRACIN [Suspect]
     Active Substance: BACITRACIN
     Indication: Dry eye

REACTIONS (4)
  - Eye pruritus [Recovering/Resolving]
  - Eye swelling [Recovering/Resolving]
  - Ocular discomfort [Recovering/Resolving]
  - Off label use [Recovered/Resolved]

NARRATIVE: CASE EVENT DATE: 20210323
